FAERS Safety Report 25956328 (Version 1)
Quarter: 2025Q4

REPORT INFORMATION
  Report Type: Spontaneous
  Country: GB (occurrence: GB)
  Receive Date: 20251024
  Receipt Date: 20251024
  Transmission Date: 20260117
  Serious: Yes (Other)
  Sender: AUROBINDO
  Company Number: GB-MHRA-TPP18022854C23695599YC1760348093974

PATIENT
  Age: 37 Year
  Sex: Male
  Weight: 92 kg

DRUGS (11)
  1. ACETAMINOPHEN [Suspect]
     Active Substance: ACETAMINOPHEN
     Indication: Ill-defined disorder
     Dosage: 1-2 TABLET
     Route: 065
  2. AMOXICILLIN\CLAVULANATE POTASSIUM [Concomitant]
     Active Substance: AMOXICILLIN\CLAVULANATE POTASSIUM
     Indication: Ill-defined disorder
     Dosage: 1 TABLET
     Route: 065
     Dates: start: 20250722, end: 20250728
  3. LISDEXAMFETAMINE [Concomitant]
     Active Substance: LISDEXAMFETAMINE
     Indication: Ill-defined disorder
     Dosage: 1 CAPSULE
     Route: 065
     Dates: start: 20250612
  4. IBUPROFEN [Concomitant]
     Active Substance: IBUPROFEN
     Indication: Ill-defined disorder
     Dosage: 1 TABLET
     Route: 065
     Dates: start: 20251013
  5. Qv [Concomitant]
     Indication: Ill-defined disorder
     Dosage: 1 APPLICATION
     Route: 065
     Dates: start: 20231011
  6. ADAPALENE [Concomitant]
     Active Substance: ADAPALENE
     Indication: Ill-defined disorder
     Dosage: 1 APPLICATION
     Route: 065
     Dates: start: 20231102
  7. BECLOMETHASONE DIPROPIONATE [Concomitant]
     Active Substance: BECLOMETHASONE DIPROPIONATE
     Indication: Ill-defined disorder
     Dosage: 1-2 ACTUATION
     Route: 065
     Dates: start: 20240108
  8. ALBUTEROL [Concomitant]
     Active Substance: ALBUTEROL
     Indication: Ill-defined disorder
     Dosage: 2 ACTUATION
     Route: 065
     Dates: start: 20240108
  9. COAL TAR [Concomitant]
     Active Substance: COAL TAR
     Indication: Ill-defined disorder
     Dosage: 1 APPLICATION
     Route: 065
     Dates: start: 20240718
  10. HYDROCORTISONE [Concomitant]
     Active Substance: HYDROCORTISONE
     Indication: Ill-defined disorder
     Dosage: 4 TABLET
     Route: 065
     Dates: start: 20250312
  11. OLANZAPINE [Concomitant]
     Active Substance: OLANZAPINE
     Indication: Ill-defined disorder
     Dosage: 1 TABLET
     Route: 065
     Dates: start: 20250611

REACTIONS (1)
  - Vomiting [Unknown]
